FAERS Safety Report 16236274 (Version 9)
Quarter: 2019Q3

REPORT INFORMATION
  Report Type: Report from Study
  Country: PL (occurrence: PL)
  Receive Date: 20190425
  Receipt Date: 20190726
  Transmission Date: 20191004
  Serious: Yes (Hospitalization)
  Sender: FDA-Public Use
  Company Number: PL-ROCHE-2302073

PATIENT
  Age: 32 Year
  Sex: Female
  Weight: 60 kg

DRUGS (14)
  1. ALLERTEC [Concomitant]
     Active Substance: CETIRIZINE HYDROCHLORIDE
     Dosage: (BASELINE (WEEK 1)), 17/APR/2012 (WEEK 2), 18/SEP/2012(WEEK 24), 15/MAR/2013(WEEK 48), 20/AUG/2013(
     Route: 065
     Dates: start: 20120403
  2. EUTHYROX N [Concomitant]
     Active Substance: LEVOTHYROXINE SODIUM
     Indication: HYPOTHYROIDISM
     Route: 048
     Dates: start: 20130821, end: 20140114
  3. EUTHYROX N [Concomitant]
     Active Substance: LEVOTHYROXINE SODIUM
     Route: 048
     Dates: start: 20140115
  4. HEVIRAN [ACICLOVIR] [Concomitant]
     Route: 065
     Dates: start: 20190426
  5. PLACEBO [Suspect]
     Active Substance: UNSPECIFIED INGREDIENT
     Indication: RELAPSING-REMITTING MULTIPLE SCLEROSIS
     Dosage: ON DAYS 1 AND 15 FOR THE FIRST DOSE AND AS A SINGLE INFUSION FOR ALL SUBSEQUENT INFUSIONS EVERY 24 W
     Route: 041
     Dates: start: 20120403
  6. LESIPLUS [Concomitant]
     Active Substance: DROSPIRENONE\ETHINYL ESTRADIOL
     Indication: CONTRACEPTION
     Dosage: 1 TABLET
     Route: 048
     Dates: start: 20140820
  7. INTERFERON BETA-1A [Suspect]
     Active Substance: INTERFERON BETA-1A
     Indication: RELAPSING-REMITTING MULTIPLE SCLEROSIS
     Dosage: DATE OF LAST DOSE PRIOR TO SAE: 20/FEB/2014
     Route: 058
     Dates: start: 20120403
  8. OCRELIZUMAB. [Suspect]
     Active Substance: OCRELIZUMAB
     Indication: RELAPSING-REMITTING MULTIPLE SCLEROSIS
     Dosage: (OLE-WEEK 0), 06/MAR/2014 (OLE-WEEK 2), ?300 MG INFUSIONS ON DAYS 1 AND 15 FOR THE FIRST DOSE AND AS
     Route: 042
     Dates: start: 20140220
  9. PARACETAMOL [Concomitant]
     Active Substance: ACETAMINOPHEN
     Dosage: (BASELINE (WEEK 1)), 17/APR/2012 (WEEK 2), 18/SEP/2012(WEEK 24), 15/MAR/2013(WEEK 48), 20/AUG/2013(
     Route: 065
     Dates: start: 20120403
  10. METHYLPREDNISOLONE. [Concomitant]
     Active Substance: METHYLPREDNISOLONE
     Dosage: (BASELINE (WEEK 1)), 17/APR/2012 (WEEK 2), 18/SEP/2012(WEEK 24), 15/MAR/2013(WEEK 48), 20/AUG/2013(
     Route: 065
     Dates: start: 20120403
  11. FLUKONAZOL [Concomitant]
     Active Substance: FLUCONAZOLE
     Route: 065
     Dates: start: 20190426
  12. OCRELIZUMAB. [Suspect]
     Active Substance: OCRELIZUMAB
     Dosage: (OLE-WEEK 24), 23/JAN/2015(OLE-WEEK 48), 09/JUL/2015 (OLE-WEEK 72), 22/DEC/2015 (OLE-WEEK 96), 09/J
     Route: 042
     Dates: start: 20140805
  13. XARELTO [Concomitant]
     Active Substance: RIVAROXABAN
  14. CLEXANE [Concomitant]
     Active Substance: ENOXAPARIN SODIUM
     Indication: VENOUS THROMBOSIS
     Route: 058
     Dates: start: 20190107

REACTIONS (1)
  - Haemophagocytic lymphohistiocytosis [Not Recovered/Not Resolved]

NARRATIVE: CASE EVENT DATE: 20190403
